FAERS Safety Report 11111894 (Version 1)
Quarter: 2015Q2

REPORT INFORMATION
  Report Type: Spontaneous
  Country: US (occurrence: None)
  Receive Date: 20150513
  Receipt Date: 20150513
  Transmission Date: 20150821
  Serious: Yes (Life-Threatening, Hospitalization)
  Sender: FDA-Public Use
  Company Number: None

PATIENT
  Age: 61 Year
  Sex: Male
  Weight: 110 kg

DRUGS (1)
  1. DOFETILIDE [Suspect]
     Active Substance: DOFETILIDE
     Indication: ATRIAL FIBRILLATION
     Route: 048
     Dates: start: 20141215, end: 20150127

REACTIONS (6)
  - Dilatation ventricular [None]
  - Atrial tachycardia [None]
  - Pulmonary hypertension [None]
  - Ejection fraction decreased [None]
  - Ventricular tachycardia [None]
  - Coronary artery disease [None]

NARRATIVE: CASE EVENT DATE: 20150115
